FAERS Safety Report 19690816 (Version 1)
Quarter: 2021Q3

REPORT INFORMATION
  Report Type: Spontaneous
  Country: US (occurrence: US)
  Receive Date: 20210812
  Receipt Date: 20210812
  Transmission Date: 20211014
  Serious: No
  Sender: FDA-Public Use
  Company Number: US-VYNE PHARMACEUTICALS INC-2021-VYNE-US003305

PATIENT

DRUGS (1)
  1. AMZEEQ [Suspect]
     Active Substance: MINOCYCLINE HYDROCHLORIDE
     Indication: ACNE
     Dosage: UNK, DAILY
     Route: 061
     Dates: start: 20210607

REACTIONS (3)
  - Dermatitis acneiform [Recovering/Resolving]
  - Product storage error [Unknown]
  - Wrong technique in product usage process [Unknown]

NARRATIVE: CASE EVENT DATE: 20210609
